FAERS Safety Report 19261751 (Version 2)
Quarter: 2021Q3

REPORT INFORMATION
  Report Type: Spontaneous
  Country: US (occurrence: US)
  Receive Date: 20210515
  Receipt Date: 20210716
  Transmission Date: 20211014
  Serious: Yes (Life-Threatening, Hospitalization, Other)
  Sender: FDA-Public Use
  Company Number: US-TEVA-2021-US-1910077

PATIENT
  Age: 29 Year
  Sex: Male

DRUGS (8)
  1. GEMCITABINE. [Suspect]
     Active Substance: GEMCITABINE
     Dosage: RECEIVED OVER 25 DAYS
     Route: 050
  2. GEMCITABINE. [Suspect]
     Active Substance: GEMCITABINE
     Dosage: RECEIVED OVER 25 DAYS
     Route: 050
  3. FLUOROURACIL. [Suspect]
     Active Substance: FLUOROURACIL
     Indication: CHOLANGIOCARCINOMA
     Route: 065
  4. OXALIPLATIN. [Suspect]
     Active Substance: OXALIPLATIN
     Indication: CHOLANGIOCARCINOMA
     Route: 065
  5. CISPLATIN. [Concomitant]
     Active Substance: CISPLATIN
     Indication: CHOLANGIOCARCINOMA
     Dosage: ON DAYS 1 AND 8 OF EACH 21?DAY CYCLE FOR A TOTAL OF 9 CYCLES
     Route: 042
  6. GEMCITABINE. [Suspect]
     Active Substance: GEMCITABINE
     Indication: CHOLANGIOCARCINOMA
     Dosage: ON DAYS 1 AND 8 OF EACH 21?DAY CYCLE FOR A TOTAL OF 9 CYCLES
     Route: 042
  7. GEMCITABINE. [Suspect]
     Active Substance: GEMCITABINE
     Dosage: RECEIVED OVER 25 DAYS
     Route: 050
  8. FOLINIC?ACID [Suspect]
     Active Substance: LEUCOVORIN
     Indication: CHOLANGIOCARCINOMA
     Route: 065

REACTIONS (7)
  - Drug ineffective [Unknown]
  - Nephrolithiasis [Unknown]
  - Ascites [Unknown]
  - Myelosuppression [Recovering/Resolving]
  - Thrombotic microangiopathy [Recovering/Resolving]
  - Splenomegaly [Unknown]
  - Hydronephrosis [Unknown]
